FAERS Safety Report 5967287-5 (Version None)
Quarter: 2008Q4

REPORT INFORMATION
  Report Type: 
  Country: None (occurrence: None)
  Receive Date: 20081125
  Receipt Date: 20081115
  Transmission Date: 20090506
  Serious: Yes (Death, Hospitalization)
  Sender: FDA-Public Use
  Company Number: CG-MERCK-0811USA02334

PATIENT
  Age: 41 Year
  Sex: Male

DRUGS (1)
  1. STROMECTOL [Suspect]
     Indication: ONCHOCERCIASIS
     Route: 048
     Dates: start: 20071202, end: 20071202

REACTIONS (8)
  - COMA [None]
  - CONFUSIONAL STATE [None]
  - DECUBITUS ULCER [None]
  - DISORIENTATION [None]
  - HEADACHE [None]
  - MENINGITIS [None]
  - OCULAR HYPERAEMIA [None]
  - PRURITUS [None]
